FAERS Safety Report 6735543-9 (Version None)
Quarter: 2010Q2

REPORT INFORMATION
  Report Type: 
  Country: None (occurrence: None)
  Receive Date: 20100521
  Receipt Date: 20100512
  Transmission Date: 20101027
  Serious: Yes (Hospitalization)
  Sender: FDA-Public Use
  Company Number: JP-SANOFI-AVENTIS-A01200906812

PATIENT
  Age: 56 Year
  Sex: Male
  Weight: 76 kg

DRUGS (8)
  1. CLOPIDOGREL BISULFATE [Suspect]
     Indication: MYOCARDIAL INFARCTION
     Dosage: UNIT DOSE: 75 MG
     Route: 048
     Dates: start: 20090501, end: 20090622
  2. ASPIRIN [Concomitant]
     Indication: MYOCARDIAL INFARCTION
     Route: 048
     Dates: start: 20090422, end: 20090509
  3. ASPIRIN [Concomitant]
     Route: 048
     Dates: start: 20090510, end: 20090617
  4. MEVALOTIN [Concomitant]
     Indication: MYOCARDIAL INFARCTION
     Route: 048
     Dates: start: 20090501, end: 20090617
  5. TELMISARTAN [Concomitant]
     Indication: MYOCARDIAL INFARCTION
     Route: 048
     Dates: start: 20090501, end: 20090622
  6. CILOSTAZOL [Concomitant]
     Indication: MYOCARDIAL INFARCTION
     Route: 048
     Dates: start: 20090510, end: 20090622
  7. ZANTAC [Concomitant]
     Indication: GASTRIC DISORDER
     Route: 048
     Dates: start: 20090512, end: 20090617
  8. ARTIST [Concomitant]
     Indication: MYOCARDIAL INFARCTION
     Route: 048
     Dates: start: 20090522, end: 20090622

REACTIONS (6)
  - DRUG RASH WITH EOSINOPHILIA AND SYSTEMIC SYMPTOMS [None]
  - ERYTHEMA [None]
  - LIVER DISORDER [None]
  - MUCOSAL EROSION [None]
  - PRURITUS GENERALISED [None]
  - SWELLING FACE [None]
